FAERS Safety Report 7611399-7 (Version None)
Quarter: 2011Q3

REPORT INFORMATION
  Report Type: 
  Country: None (occurrence: None)
  Receive Date: 20110715
  Receipt Date: 20110705
  Transmission Date: 20111222
  Serious: Yes (Death, Other)
  Sender: FDA-Public Use
  Company Number: JP-ROCHE-785258

PATIENT
  Sex: Male
  Weight: 61 kg

DRUGS (10)
  1. FLUOROURACIL [Concomitant]
     Dosage: TREATMENT CYCLE NUMBER :44
     Route: 041
     Dates: start: 20061122
  2. FAMOTIDINE [Concomitant]
     Dosage: DOSAGE IS UNCERTAIN
     Route: 065
  3. ELIETEN [Concomitant]
     Route: 048
     Dates: start: 20061206, end: 20110606
  4. FAMOSTAGINE [Concomitant]
     Route: 048
     Dates: start: 20061122, end: 20110606
  5. OXALIPLATIN [Concomitant]
     Dosage: TREATMENT CYCLE NUMBER:44
     Route: 041
     Dates: start: 20061122, end: 20110606
  6. DECADRON [Concomitant]
     Dates: start: 20061206, end: 20110606
  7. PRIMPERAN TAB [Concomitant]
     Dosage: DOSAGE IS UNCERTAIN.
  8. AVASTIN [Suspect]
     Indication: RECTAL CANCER METASTATIC
     Route: 041
     Dates: start: 20071226, end: 20110606
  9. ISOVORIN [Concomitant]
     Dosage: TREATMENT CYCLE NUMBER:44
     Route: 041
     Dates: start: 20061106, end: 20110606
  10. FLUOROURACIL [Concomitant]
     Dosage: TREATMENT CYCLE NUMBER :44
     Route: 041
     Dates: end: 20110606

REACTIONS (3)
  - MYOCARDIAL RUPTURE [None]
  - ACUTE MYOCARDIAL INFARCTION [None]
  - HYPOXIC-ISCHAEMIC ENCEPHALOPATHY [None]
